FAERS Safety Report 6658596-5 (Version None)
Quarter: 2010Q1

REPORT INFORMATION
  Report Type: 
  Country: None (occurrence: None)
  Receive Date: 20100330
  Receipt Date: 20100305
  Transmission Date: 20100710
  Serious: No
  Sender: FDA-Public Use
  Company Number: US-BIOGENIDEC-2010BI007724

PATIENT
  Age: 47 Year
  Sex: Female

DRUGS (1)
  1. TYSABRI [Suspect]
     Indication: MULTIPLE SCLEROSIS
     Route: 042
     Dates: start: 20090807

REACTIONS (6)
  - BALANCE DISORDER [None]
  - FALL [None]
  - HAND FRACTURE [None]
  - PAIN IN EXTREMITY [None]
  - SKIN LACERATION [None]
  - WRIST FRACTURE [None]
